FAERS Safety Report 23562564 (Version 1)
Quarter: 2024Q1

REPORT INFORMATION
  Report Type: Spontaneous
  Country: US (occurrence: US)
  Receive Date: 20240226
  Receipt Date: 20240226
  Transmission Date: 20240409
  Serious: No
  Sender: FDA-Public Use
  Company Number: US-SA-SAC20240216000159

PATIENT
  Age: 37 Year
  Sex: Female
  Weight: 60 kg

DRUGS (1)
  1. DUPIXENT [Suspect]
     Active Substance: DUPILUMAB
     Indication: Nasal polyps
     Dosage: 300 MG, QOW
     Route: 058
     Dates: start: 2023

REACTIONS (11)
  - Nasal polyps [Unknown]
  - Condition aggravated [Unknown]
  - Hyposmia [Unknown]
  - Facial pain [Unknown]
  - Rhinorrhoea [Unknown]
  - Sneezing [Unknown]
  - Cough [Unknown]
  - Hypogeusia [Unknown]
  - Ear pain [Unknown]
  - Ear discomfort [Unknown]
  - Facial discomfort [Unknown]

NARRATIVE: CASE EVENT DATE: 20240101
